FAERS Safety Report 24145451 (Version 3)
Quarter: 2024Q3

REPORT INFORMATION
  Report Type: Spontaneous
  Country: PT (occurrence: PT)
  Receive Date: 20240729
  Receipt Date: 20240827
  Transmission Date: 20241017
  Serious: Yes (Life-Threatening, Hospitalization, Other)
  Sender: AUROBINDO
  Company Number: PT-AUROBINDO-AUR-APL-2024-037254

PATIENT
  Age: 65 Year
  Sex: Female

DRUGS (5)
  1. FLUCLOXACILLIN [Suspect]
     Active Substance: FLUCLOXACILLIN
     Indication: Folliculitis
     Dosage: 500 MILLIGRAM
     Route: 065
  2. IBUPROFEN [Suspect]
     Active Substance: IBUPROFEN
     Indication: Toothache
     Dosage: UNK
     Route: 065
  3. ACEMETACIN [Suspect]
     Active Substance: ACEMETACIN
     Indication: Toothache
     Dosage: UNK
     Route: 065
  4. DEXKETOPROFEN [Suspect]
     Active Substance: DEXKETOPROFEN
     Indication: Toothache
     Dosage: UNK
     Route: 065
  5. PIPERACILLIN SODIUM\TAZOBACTAM SODIUM [Concomitant]
     Active Substance: PIPERACILLIN SODIUM\TAZOBACTAM SODIUM
     Indication: Evidence based treatment
     Dosage: UNK
     Route: 065

REACTIONS (5)
  - Agranulocytosis [Recovered/Resolved]
  - Nephropathy toxic [Recovered/Resolved]
  - Intentional product misuse [Unknown]
  - Drug ineffective [Unknown]
  - Self-medication [Unknown]
